FAERS Safety Report 6141285-3 (Version None)
Quarter: 2009Q2

REPORT INFORMATION
  Report Type: 
  Country: None (occurrence: None)
  Receive Date: 20090402
  Receipt Date: 20090326
  Transmission Date: 20091009
  Serious: Yes (Hospitalization)
  Sender: FDA-Public Use
  Company Number: JP-AVENTIS-200910743JP

PATIENT
  Age: 53 Year
  Sex: Male
  Weight: 59 kg

DRUGS (6)
  1. ALLEGRA [Suspect]
     Route: 048
     Dates: end: 20060904
  2. ALESION [Suspect]
     Route: 048
     Dates: end: 20060904
  3. HOMOCLOMIN                         /00357801/ [Suspect]
     Route: 048
     Dates: end: 20060904
  4. NEOMALLERMIN-TR [Suspect]
     Route: 048
     Dates: end: 20060822
  5. TAGAMET [Suspect]
     Route: 048
     Dates: end: 20060904
  6. TAGAMET [Suspect]
     Route: 048
     Dates: end: 20060904

REACTIONS (1)
  - BRUGADA SYNDROME [None]
